FAERS Safety Report 7979023-1 (Version None)
Quarter: 2011Q4

REPORT INFORMATION
  Report Type: 
  Country: None (occurrence: None)
  Receive Date: 20111214
  Receipt Date: 20111213
  Transmission Date: 20120403
  Serious: No
  Sender: FDA-Public Use
  Company Number: US-PFIZER INC-2011303602

PATIENT
  Sex: Female
  Weight: 102.4 kg

DRUGS (3)
  1. CELEBREX [Suspect]
     Indication: INFLAMMATION
     Dosage: 200 MG, 1X/DAY
     Route: 048
     Dates: start: 20111208, end: 20111211
  2. TRAMADOL [Concomitant]
     Indication: PAIN
     Dosage: 50 MG, 3X/DAY
  3. CELEBREX [Suspect]
     Indication: OSTEOARTHRITIS

REACTIONS (3)
  - PRURITUS [None]
  - RASH [None]
  - OROPHARYNGEAL PAIN [None]
